FAERS Safety Report 5330241-0 (Version None)
Quarter: 2007Q2

REPORT INFORMATION
  Report Type: 
  Country: None (occurrence: None)
  Receive Date: 20070521
  Receipt Date: 20070515
  Transmission Date: 20071010
  Serious: Yes (Other)
  Sender: FDA-Public Use
  Company Number: US-BRISTOL-MYERS SQUIBB COMPANY-13784764

PATIENT
  Age: 53 Year
  Sex: Female
  Weight: 68 kg

DRUGS (12)
  1. TEQUIN [Suspect]
     Indication: OSTEOMYELITIS
     Route: 048
     Dates: start: 20040922, end: 20041222
  2. ATENOLOL [Concomitant]
     Indication: HYPERTENSION
  3. ACCUPRIL [Concomitant]
     Indication: HYPERTENSION
  4. LEVBID [Concomitant]
     Indication: INCONTINENCE
  5. LEVBID [Concomitant]
     Indication: BLADDER SPASM
  6. DIAZEPAM [Concomitant]
     Indication: MULTIPLE SCLEROSIS
  7. AMBIEN [Concomitant]
     Indication: INSOMNIA
  8. VICODIN [Concomitant]
     Indication: PAIN
  9. LEXAPRO [Concomitant]
     Indication: DEPRESSION
  10. ZINC [Concomitant]
  11. ACIDOPHILUS [Concomitant]
  12. VITAMINS [Concomitant]

REACTIONS (2)
  - DIABETES MELLITUS NON-INSULIN-DEPENDENT [None]
  - HYPERGLYCAEMIA [None]
